FAERS Safety Report 9380490 (Version 2)
Quarter: 2013Q3

REPORT INFORMATION
  Report Type: Spontaneous
  Country: US (occurrence: US)
  Receive Date: 20130702
  Receipt Date: 20130705
  Transmission Date: 20140515
  Serious: No
  Sender: FDA-Public Use
  Company Number: US-009507513-1306USA014463

PATIENT
  Sex: Female

DRUGS (1)
  1. ASMANEX TWISTHALER [Suspect]
     Dosage: 1 PUFF DAILY AND IF NEEDED 2 PUFFS DAILY
     Route: 055
     Dates: start: 20110617

REACTIONS (2)
  - Drug dose omission [Unknown]
  - No adverse event [Unknown]
